FAERS Safety Report 6692325-4 (Version None)
Quarter: 2010Q2

REPORT INFORMATION
  Report Type: 
  Country: None (occurrence: None)
  Receive Date: 20100419
  Receipt Date: 20100406
  Transmission Date: 20101027
  Serious: Yes (Hospitalization)
  Sender: FDA-Public Use
  Company Number: 2010041707

PATIENT
  Sex: Female

DRUGS (1)
  1. FRAGMIN [Suspect]
     Dates: start: 20100101

REACTIONS (4)
  - APHASIA [None]
  - DYSPHEMIA [None]
  - INJECTION SITE PAIN [None]
  - TONGUE DISORDER [None]
